FAERS Safety Report 23301331 (Version 1)
Quarter: 2023Q4

REPORT INFORMATION
  Report Type: Spontaneous
  Country: CN (occurrence: CN)
  Receive Date: 20231215
  Receipt Date: 20231215
  Transmission Date: 20240110
  Serious: Yes (Other)
  Sender: FDA-Public Use
  Company Number: CN-BAXTER-2023BAX038074

PATIENT
  Age: 55 Year
  Sex: Male
  Weight: 65 kg

DRUGS (11)
  1. CYCLOPHOSPHAMIDE [Suspect]
     Active Substance: CYCLOPHOSPHAMIDE
     Indication: Plasma cell myeloma
     Dosage: 0.5 G, DILUTED WITH 250 ML OF SODIUM CHLORIDE
     Route: 041
     Dates: start: 20230914, end: 20230914
  2. CYCLOPHOSPHAMIDE [Suspect]
     Active Substance: CYCLOPHOSPHAMIDE
     Dosage: UNK, 1 CYCLE AS A PART OF KCD REGIMEN
     Route: 065
     Dates: start: 20230912
  3. MESNA [Suspect]
     Active Substance: MESNA
     Indication: Plasma cell myeloma
     Dosage: 0.4 G, DILUTED WITH 100 ML OF SODIUM CHLORIDE
     Route: 041
     Dates: start: 20230914, end: 20230914
  4. KYPROLIS [Suspect]
     Active Substance: CARFILZOMIB
     Indication: Plasma cell myeloma
     Dosage: 48.6 MG, DILUTED WITH 5% OF 100 ML OF GLUCOSE
     Route: 041
     Dates: start: 20230914, end: 20230914
  5. KYPROLIS [Suspect]
     Active Substance: CARFILZOMIB
     Dosage: 48.6 MG, DILUTED WITH 5% OF 100 ML OF GLUCOSE
     Route: 041
     Dates: start: 20230919
  6. KYPROLIS [Suspect]
     Active Substance: CARFILZOMIB
     Dosage: UNK, 1 CYCLE AS A PART OF KCD REGIMEN
     Route: 065
     Dates: start: 20120912
  7. DEXAMETHASONE [Suspect]
     Active Substance: DEXAMETHASONE
     Indication: Plasma cell myeloma
     Dosage: UNK, 1 CYCLE AS A PART OF KCD REGIMEN
     Route: 065
     Dates: start: 20230912
  8. SODIUM CHLORIDE [Suspect]
     Active Substance: SODIUM CHLORIDE
     Indication: Medication dilution
     Dosage: 150 ML, USED TO DILUTE 0.5 G OF CYCLOPHOSPHAMIDE
     Route: 041
     Dates: start: 20230914, end: 20230914
  9. SODIUM CHLORIDE [Suspect]
     Active Substance: SODIUM CHLORIDE
     Dosage: 100 ML, USED TO DILUTE 0.4 G OF MESNA
     Route: 041
     Dates: start: 20230914, end: 20230914
  10. DEXTROSE [Suspect]
     Active Substance: DEXTROSE\DEXTROSE MONOHYDRATE
     Indication: Medication dilution
     Dosage: 100 ML, USED TO DILUTE 48.6 G OF KYPROLIS (CARFILZOMIB)
     Route: 041
     Dates: start: 20230914, end: 20230914
  11. DEXTROSE [Suspect]
     Active Substance: DEXTROSE\DEXTROSE MONOHYDRATE
     Dosage: 100 ML, USED TO DILUTE 48.6 G OF KYPROLIS (CARFILZOMIB)
     Route: 041
     Dates: start: 20230919

REACTIONS (1)
  - Full blood count decreased [Recovering/Resolving]

NARRATIVE: CASE EVENT DATE: 20230918
